FAERS Safety Report 11111895 (Version 1)
Quarter: 2015Q2

REPORT INFORMATION
  Report Type: Spontaneous
  Country: US (occurrence: None)
  Receive Date: 20150513
  Receipt Date: 20150513
  Transmission Date: 20150821
  Serious: No
  Sender: FDA-Public Use
  Company Number: None

PATIENT
  Age: 67 Year
  Sex: Male
  Weight: 95 kg

DRUGS (2)
  1. POLYETHYLENE GLYCOL [Suspect]
     Active Substance: POLYETHYLENE GLYCOLS
     Indication: BOWEL PREPARATION
     Dates: start: 20150107, end: 20150109
  2. POLYETHYLENE GLYCOL [Suspect]
     Active Substance: POLYETHYLENE GLYCOLS
     Dates: start: 20150107, end: 20150109

REACTIONS (10)
  - Fall [None]
  - Dizziness [None]
  - Feeling abnormal [None]
  - Arthralgia [None]
  - Hypophagia [None]
  - Haemorrhage [None]
  - Musculoskeletal pain [None]
  - Coordination abnormal [None]
  - Skin abrasion [None]
  - Gait disturbance [None]

NARRATIVE: CASE EVENT DATE: 20150109
